FAERS Safety Report 13737901 (Version 1)
Quarter: 2017Q3

REPORT INFORMATION
  Report Type: Spontaneous
  Country: US (occurrence: US)
  Receive Date: 20170710
  Receipt Date: 20170710
  Transmission Date: 20171127
  Serious: Yes (Other)
  Sender: FDA-Public Use
  Company Number: US-SAOL THERAPEUTICS-2016SAO00826

PATIENT
  Sex: Female

DRUGS (2)
  1. LIORESAL [Suspect]
     Active Substance: BACLOFEN
     Indication: MUSCLE SPASTICITY
     Dosage: 120 ?G, \DAY
     Route: 037
     Dates: end: 20160923
  2. LIORESAL [Suspect]
     Active Substance: BACLOFEN
     Indication: CEREBRAL PALSY
     Dosage: 96 ?G, \DAY
     Route: 037
     Dates: start: 20160923

REACTIONS (3)
  - Therapy non-responder [Recovered/Resolved]
  - Device damage [Recovered/Resolved]
  - Device dislocation [Recovered/Resolved]
